FAERS Safety Report 21408361 (Version 2)
Quarter: 2022Q4

REPORT INFORMATION
  Report Type: Spontaneous
  Country: IT (occurrence: IT)
  Receive Date: 20221004
  Receipt Date: 20221016
  Transmission Date: 20230113
  Serious: Yes (Death, Life-Threatening, Hospitalization, Other)
  Sender: FDA-Public Use
  Company Number: IT-BoehringerIngelheim-2022-BI-195460

PATIENT
  Age: 78 Year
  Sex: Male
  Weight: 85 kg

DRUGS (1)
  1. PRAXBIND [Suspect]
     Active Substance: IDARUCIZUMAB
     Indication: Cerebral haemorrhage
     Route: 042
     Dates: start: 20220930, end: 20220930

REACTIONS (2)
  - Coma [Fatal]
  - Cerebral haemorrhage [Recovered/Resolved]

NARRATIVE: CASE EVENT DATE: 20220930
